FAERS Safety Report 5734978-0 (Version None)
Quarter: 2008Q2

REPORT INFORMATION
  Report Type: 
  Country: None (occurrence: None)
  Receive Date: 20080505
  Receipt Date: 20070806
  Transmission Date: 20081010
  Serious: Yes (Life-Threatening)
  Sender: FDA-Public Use
  Company Number: PHEH2007US09395

PATIENT
  Age: 36 Year
  Sex: Female

DRUGS (2)
  1. LAMISIL AT [Suspect]
     Indication: TINEA PEDIS
     Dosage: BID, TOPICAL
     Route: 061
     Dates: start: 20070624, end: 20070624
  2. ALLEGRA [Concomitant]

REACTIONS (3)
  - FOOD ALLERGY [None]
  - RASH ERYTHEMATOUS [None]
  - RASH PRURITIC [None]
